FAERS Safety Report 8420567-6 (Version None)
Quarter: 2012Q2

REPORT INFORMATION
  Report Type: 
  Country: None (occurrence: None)
  Receive Date: 20120608
  Receipt Date: 20120605
  Transmission Date: 20120825
  Serious: No
  Sender: FDA-Public Use
  Company Number: US-BIOGENIDEC-2012BI016451

PATIENT
  Age: 50 Year
  Sex: Female

DRUGS (2)
  1. TYSABRI [Suspect]
     Indication: MULTIPLE SCLEROSIS
     Route: 042
     Dates: start: 20101116
  2. PREPARATION H CREAM [Concomitant]
     Indication: HERPES ZOSTER

REACTIONS (4)
  - MULTIPLE SCLEROSIS [None]
  - PNEUMONIA [None]
  - RASH VESICULAR [None]
  - MULTIPLE SCLEROSIS RELAPSE [None]
